FAERS Safety Report 7905066-X (Version None)
Quarter: 2011Q4

REPORT INFORMATION
  Report Type: 
  Country: None (occurrence: None)
  Receive Date: 20111109
  Receipt Date: 20111104
  Transmission Date: 20120403
  Serious: Yes (Other)
  Sender: FDA-Public Use
  Company Number: PHHY2011DE64606

PATIENT
  Sex: Female

DRUGS (1)
  1. EXTAVIA [Suspect]
     Indication: MULTIPLE SCLEROSIS
     Dosage: 250 UG/ML, QOD
     Route: 058
     Dates: start: 20110502, end: 20110825

REACTIONS (4)
  - INJECTION SITE ERYTHEMA [None]
  - VISUAL IMPAIRMENT [None]
  - INJECTION SITE INFLAMMATION [None]
  - MACULAR OEDEMA [None]
